FAERS Safety Report 14305568 (Version 1)
Quarter: 2017Q4

REPORT INFORMATION
  Report Type: Spontaneous
  Country: US (occurrence: US)
  Receive Date: 20171219
  Receipt Date: 20171219
  Transmission Date: 20180321
  Serious: Yes (Other)
  Sender: FDA-Public Use
  Company Number: US-OTSUKA-DJ20107110

PATIENT
  Sex: Male
  Weight: 83.9 kg

DRUGS (1)
  1. ABILIFY [Suspect]
     Active Substance: ARIPIPRAZOLE
     Indication: PRODUCT USED FOR UNKNOWN INDICATION
     Dosage: UNK
     Route: 065

REACTIONS (5)
  - Drug effect decreased [Unknown]
  - Muscle spasms [Unknown]
  - Myocardial infarction [Unknown]
  - Mental disorder [Unknown]
  - Musculoskeletal stiffness [Unknown]
